FAERS Safety Report 5691086-5 (Version None)
Quarter: 2008Q2

REPORT INFORMATION
  Report Type: 
  Country: None (occurrence: None)
  Receive Date: 20080401
  Receipt Date: 20080325
  Transmission Date: 20081010
  Serious: Yes (Other)
  Sender: FDA-Public Use
  Company Number: AT-BOEHRINGER INGELHEIM GMBH, GERMANY-2008-BE-00017BE

PATIENT
  Age: 68 Year
  Sex: Male
  Weight: 75 kg

DRUGS (6)
  1. SPIRIVA [Suspect]
  2. ZELDOX [Suspect]
  3. TRAZODONE HCL [Suspect]
  4. DOMINAL [Suspect]
  5. AVELOX [Suspect]
  6. ZITHROMAX [Suspect]

REACTIONS (2)
  - ATRIAL FIBRILLATION [None]
  - VENTRICULAR TACHYCARDIA [None]
